FAERS Safety Report 4737988-5 (Version None)
Quarter: 2005Q3

REPORT INFORMATION
  Report Type: 
  Country: None (occurrence: None)
  Receive Date: 20050803
  Receipt Date: 20050721
  Transmission Date: 20060218
  Serious: Yes (Other)
  Sender: FDA-Public Use
  Company Number: EM2005-0363

PATIENT
  Age: 52 Year
  Sex: Male
  Weight: 77 kg

DRUGS (7)
  1. PROLEUKIN [Suspect]
     Indication: HIV INFECTION
     Dosage: 4.5 MIU, SUBCUTAN.
     Route: 058
     Dates: start: 20010219
  2. LAMIVUDINE [Concomitant]
  3. NEVIRAPINE [Concomitant]
  4. TENOFOVIR (TENOFOVIR) [Concomitant]
  5. AMLODIPINE [Concomitant]
  6. ACETYLSALICYLATE LYSINE (ACETYLSALICYLATE LYSINE) [Concomitant]
  7. SULFAMETHOXAZOLE W/TRIMETHOPRIM (TRIMETHOPRIM, SULFAMETHOXAZOLE) [Concomitant]

REACTIONS (1)
  - ANGIONEUROTIC OEDEMA [None]
